FAERS Safety Report 9903662 (Version 1)
Quarter: 2014Q1

REPORT INFORMATION
  Report Type: Report from Study
  Country: US (occurrence: US)
  Receive Date: 20140217
  Receipt Date: 20140217
  Transmission Date: 20141002
  Serious: Yes (Hospitalization)
  Sender: FDA-Public Use
  Company Number: US-ABBVIE-14P-163-1199453-00

PATIENT
  Sex: Female

DRUGS (8)
  1. HUMIRA [Suspect]
     Indication: CROHN^S DISEASE
     Dates: start: 201311
  2. IMURAN [Concomitant]
     Indication: CROHN^S DISEASE
  3. LEXAPRO [Concomitant]
     Indication: DEPRESSION
  4. MULTI-VITAMIN [Concomitant]
     Indication: PRODUCT USED FOR UNKNOWN INDICATION
  5. CACIUM+D [Concomitant]
     Indication: PRODUCT USED FOR UNKNOWN INDICATION
  6. BUDESONIDE ER [Concomitant]
     Indication: CROHN^S DISEASE
  7. IRON [Concomitant]
     Indication: PRODUCT USED FOR UNKNOWN INDICATION
  8. BIRTH CONTROL [Concomitant]
     Dosage: ONE PILL DAILY

REACTIONS (2)
  - Crohn^s disease [Not Recovered/Not Resolved]
  - Pyrexia [Unknown]
